FAERS Safety Report 8204507-0 (Version None)
Quarter: 2012Q1

REPORT INFORMATION
  Report Type: 
  Country: None (occurrence: None)
  Receive Date: 20120313
  Receipt Date: 20120302
  Transmission Date: 20120608
  Serious: Yes (Other)
  Sender: FDA-Public Use
  Company Number: FR-FRI-1000029004

PATIENT
  Sex: Female
  Weight: 65 kg

DRUGS (7)
  1. LESCOL [Concomitant]
     Indication: HYPERCHOLESTEROLAEMIA
     Dates: start: 20110621
  2. XANAX [Concomitant]
     Indication: ANXIETY
     Dosage: 0.25 MG
     Route: 048
     Dates: start: 20110621
  3. TRAMADOL HCL [Concomitant]
     Indication: PAIN
     Route: 048
  4. ISOPTIN [Concomitant]
     Indication: ARRHYTHMIA
     Dates: start: 20110621
  5. ESCITALOPRAM [Suspect]
     Indication: DEPRESSION
     Dosage: 10 MG
     Route: 048
     Dates: start: 20111108, end: 20111215
  6. ZOLPIDEM [Concomitant]
     Indication: INSOMNIA
     Route: 048
     Dates: start: 20110621
  7. CALCIUM CARBONATE [Concomitant]
     Indication: OSTEOPOROSIS
     Dates: start: 20110621

REACTIONS (1)
  - PURPURA [None]
